FAERS Safety Report 21124867 (Version 1)
Quarter: 2022Q3

REPORT INFORMATION
  Report Type: Spontaneous
  Country: US (occurrence: US)
  Receive Date: 20220725
  Receipt Date: 20220725
  Transmission Date: 20221027
  Serious: Yes (Life-Threatening, Hospitalization, Other)
  Sender: FDA-Public Use
  Company Number: US-PFIZER INC-PV202200021101

PATIENT
  Age: 22 Year
  Sex: Male

DRUGS (4)
  1. AMPICILLIN SODIUM\SULBACTAM SODIUM [Suspect]
     Active Substance: AMPICILLIN SODIUM\SULBACTAM SODIUM
     Indication: Pharyngeal abscess
     Dosage: 6 MG; EVERY 6 HOURS
     Route: 042
  2. VANCOMYCIN HYDROCHLORIDE [Suspect]
     Active Substance: VANCOMYCIN HYDROCHLORIDE
     Indication: Pharyngeal abscess
     Dosage: 1 G; EVERY 12 HOURS
  3. PIPERACILLIN SODIUM\TAZOBACTAM SODIUM [Suspect]
     Active Substance: PIPERACILLIN SODIUM\TAZOBACTAM SODIUM
     Indication: Pharyngeal abscess
     Dosage: 4.5 G, 4X/DAY
     Route: 042
  4. CLINDAMYCIN PALMITATE HYDROCHLORIDE [Suspect]
     Active Substance: CLINDAMYCIN PALMITATE HYDROCHLORIDE
     Indication: Pharyngeal abscess
     Dosage: 600 MG, 3X/DAY
     Route: 042

REACTIONS (3)
  - Multisystem inflammatory syndrome in adults [Recovered/Resolved]
  - Pyrexia [Recovered/Resolved]
  - Abdominal pain [Unknown]
